FAERS Safety Report 9271623 (Version 1)
Quarter: 2013Q2

REPORT INFORMATION
  Report Type: Spontaneous
  Country: US (occurrence: US)
  Receive Date: 20130506
  Receipt Date: 20130506
  Transmission Date: 20140414
  Serious: Yes (Other)
  Sender: FDA-Public Use
  Company Number: US-PFIZER INC-2013138923

PATIENT
  Age: 72 Year
  Sex: Female
  Weight: 87.08 kg

DRUGS (19)
  1. LYRICA [Suspect]
     Indication: NEUROPATHY PERIPHERAL
     Dosage: 75 MG, 2X/DAY
     Route: 048
     Dates: start: 20130410
  2. LYRICA [Suspect]
     Indication: NEUROPATHY PERIPHERAL
  3. LYRICA [Suspect]
     Indication: ADVERSE REACTION
  4. LYRICA [Suspect]
     Indication: SPINAL PAIN
  5. METOPROLOL [Concomitant]
     Dosage: 50 MG, 2X/DAY
  6. KLOR-CON [Concomitant]
     Dosage: UNK, 2X/DAY
  7. LITHIUM [Concomitant]
     Dosage: UNK, AS NEEDED
  8. LASIX [Concomitant]
     Dosage: 20 MG, 2X/DAY
  9. ASPIRIN [Concomitant]
     Dosage: 81 MG, 1X/DAY
  10. VITAMIN D3 [Concomitant]
     Dosage: 2000 IU, 1X/DAY
  11. SELENIUM [Concomitant]
     Dosage: 50 MG, 1X/DAY
  12. CALCIUM [Concomitant]
     Dosage: 500 MG, 1X/DAY
  13. MAGNESIUM [Concomitant]
     Dosage: 500 MG, 1X/DAY
  14. MULTIMINERALS AND MULTIVITAMINS [Concomitant]
     Indication: SUPPLEMENTATION THERAPY
     Dosage: UNK
  15. LUTEIN [Concomitant]
     Indication: EYE DISORDER
     Dosage: 20 MG, 1X/DAY
  16. TRAMADOL [Concomitant]
     Indication: ARTHRITIS
     Dosage: UNK, 1X/DAY
  17. NEURONTIN [Concomitant]
     Dosage: 300 MG, AS NEEDED
  18. MOTRIN [Concomitant]
     Dosage: 800 MG, AS NEEDED
  19. OMEPRAZOLE [Concomitant]
     Dosage: UNK, 2X/DAY

REACTIONS (14)
  - Weight decreased [Unknown]
  - Bipolar disorder [Unknown]
  - Staphylococcal infection [Unknown]
  - Gait disturbance [Unknown]
  - Dizziness [Unknown]
  - Vision blurred [Unknown]
  - Insomnia [Unknown]
  - Depression [Unknown]
  - Hearing impaired [Unknown]
  - Body height decreased [Unknown]
  - Disturbance in attention [Unknown]
  - Oedema peripheral [Unknown]
  - Weight increased [Unknown]
  - Off label use [Unknown]
